FAERS Safety Report 10083388 (Version 1)
Quarter: 2014Q2

REPORT INFORMATION
  Report Type: Spontaneous
  Country: US (occurrence: None)
  Receive Date: 20140415
  Receipt Date: 20140415
  Transmission Date: 20141212
  Serious: No
  Sender: FDA-Public Use
  Company Number: None

PATIENT
  Age: 76 Year
  Sex: Male
  Weight: 95.26 kg

DRUGS (1)
  1. HYDROCHLOROTHIAZIDE 12.5 CAPSULES QUALITEST [Suspect]
     Indication: HYPERTENSION
     Route: 048
     Dates: start: 20140403, end: 20140404

REACTIONS (3)
  - Rash generalised [None]
  - Urticaria [None]
  - Product substitution issue [None]
